FAERS Safety Report 15057667 (Version 3)
Quarter: 2018Q2

REPORT INFORMATION
  Report Type: Spontaneous
  Country: US (occurrence: US)
  Receive Date: 20180625
  Receipt Date: 20180629
  Transmission Date: 20180711
  Serious: No
  Sender: FDA-Public Use
  Company Number: US-BIOGEN-2018BI00597644

PATIENT
  Sex: Female

DRUGS (1)
  1. TYSABRI [Suspect]
     Active Substance: NATALIZUMAB
     Indication: MULTIPLE SCLEROSIS
     Route: 065
     Dates: start: 20080523

REACTIONS (18)
  - Contraindication to medical treatment [Unknown]
  - Optic neuritis [Not Recovered/Not Resolved]
  - Sleep apnoea syndrome [Not Recovered/Not Resolved]
  - Hypertension [Not Recovered/Not Resolved]
  - Bronchitis chronic [Not Recovered/Not Resolved]
  - Hand fracture [Unknown]
  - Mental disorder [Unknown]
  - General physical health deterioration [Unknown]
  - Limb injury [Not Recovered/Not Resolved]
  - Immune system disorder [Not Recovered/Not Resolved]
  - Multiple sclerosis [Unknown]
  - Feeling of despair [Unknown]
  - Muscle spasms [Not Recovered/Not Resolved]
  - Oedema peripheral [Unknown]
  - Wheezing [Unknown]
  - Cast application [Not Recovered/Not Resolved]
  - Fall [Recovered/Resolved]
  - Drug ineffective [Unknown]
